FAERS Safety Report 9870202 (Version 2)
Quarter: 2014Q1

REPORT INFORMATION
  Report Type: Spontaneous
  Country: US (occurrence: US)
  Receive Date: 20140205
  Receipt Date: 20140304
  Transmission Date: 20141002
  Serious: No
  Sender: FDA-Public Use
  Company Number: US-JNJFOC-20140116327

PATIENT
  Sex: Male
  Weight: 95.26 kg

DRUGS (8)
  1. SANDOZ FENTANYL TRANSDERMAL SYSTEM [Suspect]
     Indication: PAIN
     Route: 062
     Dates: start: 2014
  2. SANDOZ FENTANYL TRANSDERMAL SYSTEM [Suspect]
     Indication: PAIN
     Route: 062
     Dates: start: 2006, end: 2009
  3. OXYCODONE/ACETAMINOPHEN [Concomitant]
     Indication: PAIN
     Route: 065
  4. DIAZEPAM [Concomitant]
     Route: 065
     Dates: start: 2012
  5. FLUOXETINE [Concomitant]
     Dosage: AT BED TIME
     Route: 048
     Dates: start: 2012
  6. BUPROPION HCL [Concomitant]
     Route: 065
  7. HYDROCHLOROTHIAZIDE/LISINOPRIL [Concomitant]
     Indication: HYPERTENSION
     Dosage: HYDROCHLOROTHIAZIDE: 12.5 MG??LISINOPRIL: 20 MG
     Route: 048
  8. GUANFACINE HCL [Concomitant]
     Dosage: AT BED TIME
     Route: 048

REACTIONS (7)
  - Wrong technique in drug usage process [Not Recovered/Not Resolved]
  - Expired drug administered [Not Recovered/Not Resolved]
  - Product quality issue [Recovered/Resolved]
  - Product quality issue [Not Recovered/Not Resolved]
  - Nasal congestion [Not Recovered/Not Resolved]
  - Abdominal pain upper [Not Recovered/Not Resolved]
  - Dry mouth [Not Recovered/Not Resolved]
